FAERS Safety Report 4952622-7 (Version None)
Quarter: 2006Q1

REPORT INFORMATION
  Report Type: 
  Country: None (occurrence: None)
  Receive Date: 20060320
  Receipt Date: 20060314
  Transmission Date: 20060701
  Serious: Yes (Hospitalization)
  Sender: FDA-Public Use
  Company Number: 060031

PATIENT
  Age: 31 Year
  Sex: Male

DRUGS (2)
  1. GOLYTELY [Suspect]
     Indication: COLOSTOMY
     Dates: start: 20060101
  2. GOLYTELY [Suspect]
     Indication: OFF LABEL USE
     Dates: start: 20060101

REACTIONS (9)
  - ACUTE RESPIRATORY DISTRESS SYNDROME [None]
  - ASPIRATION [None]
  - BLOOD PRESSURE DECREASED [None]
  - GENERAL PHYSICAL HEALTH DETERIORATION [None]
  - IATROGENIC INJURY [None]
  - INCORRECT ROUTE OF DRUG ADMINISTRATION [None]
  - MEDICATION ERROR [None]
  - PNEUMONIA [None]
  - WRONG TECHNIQUE IN DRUG USAGE PROCESS [None]
